FAERS Safety Report 19279716 (Version 2)
Quarter: 2021Q3

REPORT INFORMATION
  Report Type: Report from Study
  Country: US (occurrence: US)
  Receive Date: 20210520
  Receipt Date: 20210823
  Transmission Date: 20211014
  Serious: Yes (Hospitalization, Other)
  Sender: FDA-Public Use
  Company Number: US-TAKEDA-2021TUS030890

PATIENT
  Age: 11 Year
  Sex: Male

DRUGS (1)
  1. HUMAN NORMAL IMMUNOGLOBULIN; LIQUID [Suspect]
     Active Substance: HUMAN IMMUNOGLOBULIN G
     Indication: PARANEOPLASTIC SYNDROME
     Dosage: UNK
     Route: 065

REACTIONS (7)
  - Sepsis [Unknown]
  - Incision site abscess [Unknown]
  - Gastrointestinal disorder [Unknown]
  - Coagulopathy [Unknown]
  - Neuroblastoma [Unknown]
  - Off label use [Unknown]
  - Central venous catheter removal [Unknown]

NARRATIVE: CASE EVENT DATE: 202012
